FAERS Safety Report 7326613-5 (Version None)
Quarter: 2011Q1

REPORT INFORMATION
  Report Type: 
  Country: None (occurrence: None)
  Receive Date: 20110218
  Receipt Date: 20110209
  Transmission Date: 20110831
  Serious: No
  Sender: FDA-Public Use
  Company Number: 2011-00052

PATIENT
  Age: 59 Year
  Sex: Male
  Weight: 69.8539 kg

DRUGS (2)
  1. ZICAM EXTREME CONGESTION RELIEF [Suspect]
     Dosage: BID X 8 DAYS
     Dates: start: 20101222, end: 20101229
  2. ENBREL [Concomitant]

REACTIONS (1)
  - HYPOSMIA [None]
